FAERS Safety Report 11972171 (Version 4)
Quarter: 2016Q2

REPORT INFORMATION
  Report Type: Spontaneous
  Country: US (occurrence: US)
  Receive Date: 20160128
  Receipt Date: 20160430
  Transmission Date: 20160815
  Serious: Yes (Death, Hospitalization, Other)
  Sender: FDA-Public Use
  Company Number: US-ASTRAZENECA-2016SE07346

PATIENT
  Age: 953 Month
  Sex: Female
  Weight: 41.7 kg

DRUGS (12)
  1. PRTIAZEM [Concomitant]
     Indication: CARDIAC DISORDER
     Dosage: EVERY DAY
  2. VITAMIN C [Concomitant]
     Active Substance: ASCORBIC ACID
     Indication: BONE DISORDER
  3. POTASSIUM [Concomitant]
     Active Substance: POTASSIUM
     Indication: BONE DISORDER
  4. VITAMIN B12 [Concomitant]
     Active Substance: CYANOCOBALAMIN
     Indication: ABDOMINAL DISCOMFORT
  5. METHIMAZOLE. [Concomitant]
     Active Substance: METHIMAZOLE
     Indication: PRODUCT USED FOR UNKNOWN INDICATION
  6. CALCIUM [Concomitant]
     Active Substance: CALCIUM
     Indication: BONE DISORDER
  7. ASPIRIN. [Concomitant]
     Active Substance: ASPIRIN
     Indication: CARDIAC DISORDER
  8. LISINOPRIL. [Suspect]
     Active Substance: LISINOPRIL
     Indication: BLOOD PRESSURE ABNORMAL
     Route: 048
  9. PRTIAZEM [Concomitant]
     Indication: CARDIAC DISORDER
     Dosage: EVERY DAY
  10. SYMBICORT [Suspect]
     Active Substance: BUDESONIDE\FORMOTEROL FUMARATE DIHYDRATE
     Indication: CHRONIC OBSTRUCTIVE PULMONARY DISEASE
     Dosage: 160/4.5 MCG 2 PUFFS TWO TIMES A DAY
     Route: 055
  11. SYMBICORT [Suspect]
     Active Substance: BUDESONIDE\FORMOTEROL FUMARATE DIHYDRATE
     Indication: CHRONIC OBSTRUCTIVE PULMONARY DISEASE
     Dosage: 160/4.5 MCG 2 PUFFS TWO TIMES A DAY
     Route: 055
     Dates: start: 20151019
  12. VITAMIN D3 [Concomitant]
     Active Substance: CHOLECALCIFEROL
     Indication: BONE DISORDER

REACTIONS (17)
  - Asthenia [Not Recovered/Not Resolved]
  - Fatigue [Unknown]
  - Aphonia [Unknown]
  - Product packaging quantity issue [Unknown]
  - Spinal fracture [Unknown]
  - Hip fracture [Unknown]
  - Cardiac disorder [Unknown]
  - Weight increased [Unknown]
  - Death [Fatal]
  - Dyspnoea [Not Recovered/Not Resolved]
  - Dizziness [Unknown]
  - Pain [Unknown]
  - Barrett^s oesophagus [Unknown]
  - Adverse event [Unknown]
  - Memory impairment [Unknown]
  - Fall [Unknown]
  - Device defective [Unknown]

NARRATIVE: CASE EVENT DATE: 201507
